FAERS Safety Report 26071580 (Version 1)
Quarter: 2025Q4

REPORT INFORMATION
  Report Type: Spontaneous
  Country: CN (occurrence: CN)
  Receive Date: 20251120
  Receipt Date: 20251120
  Transmission Date: 20260118
  Serious: Yes (Death, Hospitalization, Other)
  Sender: ELI LILLY AND COMPANY
  Company Number: CN-ELI_LILLY_AND_COMPANY-CN202511016044

PATIENT
  Age: 67 Year
  Sex: Male
  Weight: 55 kg

DRUGS (4)
  1. PEMETREXED [Suspect]
     Active Substance: PEMETREXED
     Indication: Lung adenocarcinoma
     Dosage: 0.8 G, CYCLICAL
     Route: 042
     Dates: start: 202404
  2. CARBOPLATIN [Suspect]
     Active Substance: CARBOPLATIN
     Indication: Lung adenocarcinoma
     Dosage: 0.4 G, CYCLICAL
     Route: 042
     Dates: start: 202404
  3. BEVACIZUMAB [Suspect]
     Active Substance: BEVACIZUMAB
     Indication: Lung adenocarcinoma
     Dosage: 700 MG, CYCLICAL
     Route: 065
     Dates: start: 202404
  4. BEVACIZUMAB [Suspect]
     Active Substance: BEVACIZUMAB
     Dosage: 800 MG, CYCLICAL
     Route: 065
     Dates: start: 202408

REACTIONS (7)
  - Malignant neoplasm progression [Fatal]
  - Aspergillus infection [Unknown]
  - Tracheo-oesophageal fistula [Recovering/Resolving]
  - Respiratory failure [Unknown]
  - Cardiopulmonary failure [Unknown]
  - Skin toxicity [Unknown]
  - Acute oesophageal mucosal lesion [Unknown]

NARRATIVE: CASE EVENT DATE: 20241001
